FAERS Safety Report 5673977-4 (Version None)
Quarter: 2008Q1

REPORT INFORMATION
  Report Type: 
  Country: None (occurrence: None)
  Receive Date: 20080317
  Receipt Date: 20080308
  Transmission Date: 20080703
  Serious: Yes (Hospitalization)
  Sender: FDA-Public Use
  Company Number: GP-08-03-0005

PATIENT
  Age: 35 Year
  Sex: Female

DRUGS (1)
  1. GABAPENTIN         (UNKNOWN MANUFACTURER/LABELER) [Suspect]
     Indication: NERVE COMPRESSION
     Dosage: 300 MG QD PO

REACTIONS (13)
  - ABDOMINAL TENDERNESS [None]
  - ALANINE AMINOTRANSFERASE INCREASED [None]
  - BACK PAIN [None]
  - CHILLS [None]
  - DRUG RASH WITH EOSINOPHILIA AND SYSTEMIC SYMPTOMS [None]
  - HEADACHE [None]
  - LEUKOPENIA [None]
  - LYMPHADENOPATHY [None]
  - LYMPHOPENIA [None]
  - NAUSEA [None]
  - NEUTROPENIA [None]
  - PYREXIA [None]
  - WHITE BLOOD CELL COUNT DECREASED [None]
